FAERS Safety Report 14858978 (Version 1)
Quarter: 2018Q2

REPORT INFORMATION
  Report Type: Spontaneous
  Country: US (occurrence: US)
  Receive Date: 20180423
  Receipt Date: 20180423
  Transmission Date: 20180711
  Serious: Yes (Disabling, Other)
  Sender: FDA-Public Use
  Company Number: None

PATIENT
  Age: 57 Year
  Sex: Female
  Weight: 107.05 kg

DRUGS (2)
  1. FLUTICASONE PROPIONATE. [Suspect]
     Active Substance: FLUTICASONE PROPIONATE
     Indication: RESPIRATORY DISORDER
     Dosage: ?          QUANTITY:1 ;OTHER ROUTE:INSTILL IN NOSE?
     Dates: start: 20180323, end: 20180329
  2. FLUTICASONE PROPIONATE. [Suspect]
     Active Substance: FLUTICASONE PROPIONATE
     Indication: INFLUENZA
     Dosage: ?          QUANTITY:1 ;OTHER ROUTE:INSTILL IN NOSE?
     Dates: start: 20180323, end: 20180329

REACTIONS (2)
  - Ageusia [None]
  - Anosmia [None]

NARRATIVE: CASE EVENT DATE: 20180327
